FAERS Safety Report 10216310 (Version 1)
Quarter: 2014Q2

REPORT INFORMATION
  Report Type: Spontaneous
  Country: DK (occurrence: FR)
  Receive Date: 20140604
  Receipt Date: 20140604
  Transmission Date: 20141212
  Serious: Yes (Death)
  Sender: FDA-Public Use
  Company Number: FR-FRI-1000067827

PATIENT
  Age: 80 Year
  Sex: Female

DRUGS (6)
  1. ESCITALOPRAM [Suspect]
     Route: 048
     Dates: end: 20140508
  2. PREVISCAN [Suspect]
     Route: 048
     Dates: end: 20140507
  3. LEXOMIL [Concomitant]
  4. PANTOPRAZOLE [Concomitant]
  5. COVERSYL [Concomitant]
  6. AMIODARONE [Concomitant]

REACTIONS (2)
  - Haemorrhagic stroke [Fatal]
  - International normalised ratio increased [Fatal]
